FAERS Safety Report 5052367-1 (Version None)
Quarter: 2006Q3

REPORT INFORMATION
  Report Type: 
  Country: None (occurrence: None)
  Receive Date: 20060717
  Receipt Date: 20060706
  Transmission Date: 20061208
  Serious: Yes (Hospitalization)
  Sender: FDA-Public Use
  Company Number: 2006AP03119

PATIENT
  Age: 5416 Day
  Sex: Female
  Weight: 57 kg

DRUGS (4)
  1. SEROQUEL [Suspect]
     Indication: HALLUCINATION
     Route: 048
     Dates: start: 20060123, end: 20060326
  2. SEROQUEL [Suspect]
     Route: 048
     Dates: start: 20060327, end: 20060329
  3. VALPROATE SODIUM [Suspect]
     Route: 048
     Dates: start: 20060125
  4. FLUVOXAMINE MALEATE [Concomitant]
     Indication: DEPRESSION
     Route: 048
     Dates: start: 20060124

REACTIONS (1)
  - NEUTROPENIA [None]
